FAERS Safety Report 19739778 (Version 1)
Quarter: 2021Q3

REPORT INFORMATION
  Report Type: Spontaneous
  Country: TW (occurrence: TW)
  Receive Date: 20210824
  Receipt Date: 20210824
  Transmission Date: 20211014
  Serious: Yes (Other)
  Sender: FDA-Public Use
  Company Number: TW-FRESENIUS KABI-FK202108962

PATIENT

DRUGS (1)
  1. GENTAMICIN (MANUFACTURER UNKNOWN) [Suspect]
     Active Substance: GENTAMICIN
     Indication: EPIDERMOLYSIS BULLOSA
     Route: 042

REACTIONS (2)
  - Urinary tract infection [Unknown]
  - Acute kidney injury [Unknown]
